FAERS Safety Report 21685090 (Version 1)
Quarter: 2022Q4

REPORT INFORMATION
  Report Type: Spontaneous
  Country: US (occurrence: US)
  Receive Date: 20221206
  Receipt Date: 20221206
  Transmission Date: 20230113
  Serious: No
  Sender: FDA-Public Use
  Company Number: US-BEH-2022152605

PATIENT
  Sex: Male

DRUGS (1)
  1. PRIVIGEN [Suspect]
     Active Substance: HUMAN IMMUNOGLOBULIN G
     Indication: Myasthenia gravis
     Dosage: 40 GRAM, DAILY FOR 2 DAYS EVERY 4 WEEKS
     Route: 042
     Dates: start: 202112

REACTIONS (1)
  - Staphylococcal infection [Unknown]
